FAERS Safety Report 19169688 (Version 1)
Quarter: 2021Q2

REPORT INFORMATION
  Report Type: Spontaneous
  Country: CN (occurrence: CN)
  Receive Date: 20210422
  Receipt Date: 20210422
  Transmission Date: 20210717
  Serious: Yes (Other)
  Sender: FDA-Public Use
  Company Number: CN-FRESENIUS KABI-FK202104083

PATIENT
  Age: 2 Month
  Sex: Female

DRUGS (4)
  1. BLEOMYCIN A5 [Suspect]
     Active Substance: BLEOMYCIN A5
     Indication: INFANTILE HAEMANGIOMA
     Route: 065
  2. POLYVINYL ALCOHOL [Suspect]
     Active Substance: POLYVINYL ALCOHOL
     Indication: INFANTILE HAEMANGIOMA
     Route: 065
  3. DEXAMETHASONE INJECTION (MANUFACTURER UNKNOWN) [Suspect]
     Active Substance: DEXAMETHASONE
     Indication: INFANTILE HAEMANGIOMA
     Route: 065
  4. ETHIODIZED OIL [Suspect]
     Active Substance: ETHIODIZED OIL
     Indication: INFANTILE HAEMANGIOMA
     Route: 065

REACTIONS (2)
  - Off label use [Recovered/Resolved]
  - Skin necrosis [Recovered/Resolved]
